FAERS Safety Report 14749185 (Version 1)
Quarter: 2018Q2

REPORT INFORMATION
  Report Type: Spontaneous
  Country: US (occurrence: US)
  Receive Date: 20180411
  Receipt Date: 20180411
  Transmission Date: 20180711
  Serious: No
  Sender: FDA-Public Use
  Company Number: US-AMGEN-USASP2018020635

PATIENT
  Age: 80 Year
  Sex: Female

DRUGS (1)
  1. PROLIA [Suspect]
     Active Substance: DENOSUMAB
     Indication: OSTEOPOROSIS POSTMENOPAUSAL
     Dosage: UNK
     Route: 065

REACTIONS (6)
  - Contusion [Unknown]
  - Laceration [Unknown]
  - Gait disturbance [Unknown]
  - Foot deformity [Not Recovered/Not Resolved]
  - Fall [Unknown]
  - Arthropathy [Unknown]

NARRATIVE: CASE EVENT DATE: 201802
